FAERS Safety Report 4440370-1 (Version None)
Quarter: 2004Q3

REPORT INFORMATION
  Report Type: 
  Country: None (occurrence: None)
  Receive Date: 20040831
  Receipt Date: 20040506
  Transmission Date: 20050211
  Serious: No
  Sender: FDA-Public Use
  Company Number: 701964

PATIENT
  Age: 61 Year
  Sex: Male
  Weight: 85.7298 kg

DRUGS (2)
  1. AMEVIVE [Suspect]
     Indication: PSORIASIS
     Dosage: SEE IMAGE
     Route: 030
     Dates: start: 20030901, end: 20031101
  2. AMEVIVE [Suspect]
     Indication: PSORIASIS
     Dosage: 15 MG QW IM

REACTIONS (1)
  - PSORIASIS [None]
